FAERS Safety Report 10866385 (Version 1)
Quarter: 2015Q1

REPORT INFORMATION
  Report Type: Spontaneous
  Country: US (occurrence: None)
  Receive Date: 20150219
  Receipt Date: 20150219
  Transmission Date: 20150721
  Serious: Yes (Disabling)
  Sender: FDA-Public Use
  Company Number: None

PATIENT
  Age: 33 Year
  Sex: Female
  Weight: 63.5 kg

DRUGS (1)
  1. LEVAQUIN [Suspect]
     Active Substance: LEVOFLOXACIN
     Indication: URINARY TRACT INFECTION
     Dosage: 1 500 MG PILL ONCE DAILY TAKEN BY MOUTH
     Route: 048
     Dates: start: 20150216, end: 20150216

REACTIONS (7)
  - Peripheral swelling [None]
  - Bed rest [None]
  - Pain in extremity [None]
  - Arthralgia [None]
  - Tendon disorder [None]
  - Musculoskeletal stiffness [None]
  - Joint swelling [None]

NARRATIVE: CASE EVENT DATE: 20150216
